FAERS Safety Report 7646763-3 (Version None)
Quarter: 2011Q3

REPORT INFORMATION
  Report Type: 
  Country: None (occurrence: None)
  Receive Date: 20110801
  Receipt Date: 20110725
  Transmission Date: 20111222
  Serious: Yes (Hospitalization, Other)
  Sender: FDA-Public Use
  Company Number: FR-BRISTOL-MYERS SQUIBB COMPANY-15928799

PATIENT
  Age: 68 Year
  Sex: Male

DRUGS (8)
  1. IRBESARTAN AND HYDROCHLOROTHIAZIDE [Suspect]
     Dosage: 1DF= 1TAB
     Route: 048
     Dates: start: 20070101, end: 20110612
  2. ASPIRIN [Concomitant]
     Dosage: KARDEGIC 75 MG ORAL POWDER
     Route: 048
     Dates: start: 20070101
  3. ALFUZOSIN HCL [Concomitant]
  4. AMLODIPINE BESYLATE [Concomitant]
     Dosage: AMLOR 10 MG (AMLODIPINE) 20 MG DAILY ORALLY FROM 2007 TO 14-JUN-2011,1DF- 10 MG - 20 MG
     Route: 048
     Dates: start: 20070101, end: 20110614
  5. NEXIUM [Concomitant]
     Dosage: INEXIUM 20 MG ENTERIC-COATED TABLET (ESOMEPRAZOLE)
     Route: 048
     Dates: start: 20070101
  6. ATORVASTATIN CALCIUM [Suspect]
     Dosage: 1DF= 1TAB  TAHOR80 MG
     Route: 048
     Dates: start: 20070101, end: 20110612
  7. PLAVIX [Concomitant]
     Route: 048
     Dates: start: 20070101, end: 20110610
  8. ALFUZOSIN HCL [Concomitant]
     Dosage: ER CAPSULE (ALFUZOSIN) DAILY TO 14-JUN-2011
     Dates: end: 20110614

REACTIONS (5)
  - JAUNDICE CHOLESTATIC [None]
  - BENIGN PROSTATIC HYPERPLASIA [None]
  - RENAL FAILURE [None]
  - RHABDOMYOLYSIS [None]
  - PANCREATIC CARCINOMA [None]
